FAERS Safety Report 8808356 (Version 1)
Quarter: 2012Q4

REPORT INFORMATION
  Report Type: Spontaneous
  Country: US (occurrence: None)
  Receive Date: 20120920
  Receipt Date: 20120920
  Transmission Date: 20130627
  Serious: No
  Sender: FDA-Public Use
  Company Number: None

PATIENT
  Age: 54 Year
  Sex: Female

DRUGS (1)
  1. ENBREL [Suspect]
     Indication: RHEUMATOID ARTHRITIS
     Dosage: 50 mg once weekly SUBCUTANEOUS
     Route: 058
     Dates: start: 201106

REACTIONS (3)
  - Alopecia [None]
  - Decreased appetite [None]
  - Weight decreased [None]
